FAERS Safety Report 7967643-X (Version None)
Quarter: 2011Q4

REPORT INFORMATION
  Report Type: 
  Country: None (occurrence: None)
  Receive Date: 20111209
  Receipt Date: 20111129
  Transmission Date: 20120403
  Serious: Yes (Hospitalization)
  Sender: FDA-Public Use
  Company Number: US-BAYER-201032472NA

PATIENT
  Age: 35 Year
  Sex: Female
  Weight: 82 kg

DRUGS (2)
  1. SERTRALINE HYDROCHLORIDE [Concomitant]
     Dosage: 25 MG, UNK
  2. YAZ [Suspect]
     Indication: ACNE
     Route: 048
     Dates: start: 20080501, end: 20080901

REACTIONS (1)
  - PULMONARY EMBOLISM [None]
